FAERS Safety Report 8019407-9 (Version None)
Quarter: 2012Q1

REPORT INFORMATION
  Report Type: 
  Country: None (occurrence: None)
  Receive Date: 20120103
  Receipt Date: 20111227
  Transmission Date: 20120608
  Serious: Yes (Other)
  Sender: FDA-Public Use
  Company Number: PHHY2011GR113031

PATIENT
  Age: 91 Year
  Sex: Female

DRUGS (2)
  1. EXELON [Suspect]
     Indication: DEMENTIA
     Dosage: 3 MG, QD
     Route: 048
     Dates: start: 20041201
  2. EXELON [Suspect]
     Indication: DEMENTIA
     Dosage: 9.5 MG, UNK
     Route: 062

REACTIONS (8)
  - PRURITUS GENERALISED [None]
  - APPLICATION SITE EXFOLIATION [None]
  - APPLICATION SITE HYPERSENSITIVITY [None]
  - APPLICATION SITE ERYTHEMA [None]
  - APPLICATION SITE OEDEMA [None]
  - APPLICATION SITE PRURITUS [None]
  - GENERALISED OEDEMA [None]
  - GENERALISED ERYTHEMA [None]
